FAERS Safety Report 20062427 (Version 2)
Quarter: 2022Q2

REPORT INFORMATION
  Report Type: Spontaneous
  Country: US (occurrence: US)
  Receive Date: 20211112
  Receipt Date: 20220610
  Transmission Date: 20220721
  Serious: No
  Sender: FDA-Public Use
  Company Number: US-PFIZER INC-202101495761

PATIENT
  Age: 65 Year
  Sex: Female

DRUGS (2)
  1. INLYTA [Suspect]
     Active Substance: AXITINIB
     Dosage: 5 MG
     Dates: start: 20201111
  2. KEYTRUDA [Concomitant]
     Active Substance: PEMBROLIZUMAB
     Dosage: UNK

REACTIONS (9)
  - Fatigue [Unknown]
  - Hypersomnia [Unknown]
  - Gait disturbance [Unknown]
  - Tongue injury [Unknown]
  - Speech disorder [Unknown]
  - Oxygen consumption increased [Unknown]
  - Blister [Unknown]
  - Hyperkeratosis [Unknown]
  - Dyspnoea [Unknown]
